FAERS Safety Report 16451513 (Version 3)
Quarter: 2019Q3

REPORT INFORMATION
  Report Type: Spontaneous
  Country: US (occurrence: US)
  Receive Date: 20190619
  Receipt Date: 20190816
  Transmission Date: 20191004
  Serious: No
  Sender: FDA-Public Use
  Company Number: US-CELGENEUS-USA-20190605338

PATIENT
  Sex: Male

DRUGS (1)
  1. OTEZLA [Suspect]
     Active Substance: APREMILAST
     Indication: PSORIASIS
     Dosage: 60 MILLIGRAM
     Route: 048
     Dates: start: 20180613

REACTIONS (5)
  - Myalgia [Unknown]
  - Hypoaesthesia [Unknown]
  - Arthritis [Unknown]
  - Paronychia [Unknown]
  - Onychomycosis [Unknown]

NARRATIVE: CASE EVENT DATE: 2019
